FAERS Safety Report 9639889 (Version 2)
Quarter: 2013Q4

REPORT INFORMATION
  Report Type: Spontaneous
  Country: US (occurrence: US)
  Receive Date: 20131023
  Receipt Date: 20131023
  Transmission Date: 20140711
  Serious: Yes (Other)
  Sender: FDA-Public Use
  Company Number: US-RANBAXY-2010US-39550

PATIENT
  Age: 28 Year
  Sex: Female

DRUGS (12)
  1. VERAPAMIL [Suspect]
     Indication: TACHYCARDIA FOETAL
     Dosage: 80 MG, TID
     Route: 048
  2. VERAPAMIL [Interacting]
     Indication: HYDROPS FOETALIS
  3. VERAPAMIL [Interacting]
     Indication: TACHYCARDIA FOETAL
     Dosage: 120 MG, TID
     Route: 048
  4. VERAPAMIL [Interacting]
     Indication: HYDROPS FOETALIS
  5. DIGOXIN [Interacting]
     Indication: PRODUCT USED FOR UNKNOWN INDICATION
     Dosage: FIRST 24 HRS: 1.25 MG TOTAL
     Route: 065
  6. DIGOXIN [Interacting]
     Indication: PRODUCT USED FOR UNKNOWN INDICATION
     Dosage: 0.5 MG, BID
     Route: 048
  7. DIGOXIN [Interacting]
     Indication: PRODUCT USED FOR UNKNOWN INDICATION
     Dosage: 0.875
     Route: 048
  8. DIGOXIN [Interacting]
     Indication: PRODUCT USED FOR UNKNOWN INDICATION
     Dosage: 0.75 TO 1.0 MG/24 HR
     Route: 042
  9. DIGOXIN [Interacting]
     Indication: PRODUCT USED FOR UNKNOWN INDICATION
     Dosage: 0.75 MG TO 0.5 MG/24 HR
     Route: 042
  10. DIGOXIN [Interacting]
     Indication: PRODUCT USED FOR UNKNOWN INDICATION
     Dosage: 0.625 MG, QID
     Route: 048
  11. PROPRANOLOL [Concomitant]
     Indication: TACHYCARDIA FOETAL
     Dosage: 20 MG, QID
     Route: 048
  12. PROPRANOLOL [Concomitant]
     Indication: HYDROPS FOETALIS

REACTIONS (3)
  - Foetal death [Recovered/Resolved]
  - Exposure during pregnancy [Unknown]
  - Drug interaction [Unknown]
